FAERS Safety Report 9713825 (Version 1)
Quarter: 2013Q4

REPORT INFORMATION
  Report Type: Spontaneous
  Country: US (occurrence: US)
  Receive Date: 20131126
  Receipt Date: 20131126
  Transmission Date: 20140711
  Serious: Yes (Other)
  Sender: FDA-Public Use
  Company Number: US-INCYTE CORPORATION-2013IN002805

PATIENT
  Age: 68 Year
  Sex: Male

DRUGS (5)
  1. JAKAFI [Suspect]
     Indication: MYELOFIBROSIS
     Dosage: 15 MG, BID
     Route: 048
     Dates: end: 20131114
  2. OXYCONTIN [Concomitant]
  3. PRILOSEC                           /00661201/ [Concomitant]
  4. TRAZODONE [Concomitant]
  5. LORATADINE [Concomitant]

REACTIONS (1)
  - Acute myeloid leukaemia [Unknown]
